FAERS Safety Report 14922855 (Version 1)
Quarter: 2018Q2

REPORT INFORMATION
  Report Type: Spontaneous
  Country: FR (occurrence: FR)
  Receive Date: 20180522
  Receipt Date: 20180522
  Transmission Date: 20180711
  Serious: Yes (Hospitalization)
  Sender: FDA-Public Use
  Company Number: FR-TEVA-2018-FR-893958

PATIENT
  Age: 77 Year
  Sex: Male

DRUGS (7)
  1. CEBUTID L P 200 MG, GELULE A LIBERATION PROLONGEE [Suspect]
     Active Substance: FLURBIPROFEN
     Indication: RHEUMATIC DISORDER
     Dosage: 1 DOSAGE FORMS DAILY;
     Route: 048
     Dates: end: 20120627
  2. DIAMICRON 60 MG, COMPRIME SECABLE A LIBERATION MODIFIEE [Concomitant]
     Active Substance: GLICLAZIDE
     Indication: DIABETES MELLITUS
     Dosage: 1 DOSAGE FORMS DAILY;
     Route: 048
     Dates: end: 20120627
  3. FUROSEMIDE. [Suspect]
     Active Substance: FUROSEMIDE
     Indication: HYPERTENSION
     Dosage: 80 MILLIGRAM DAILY;
     Route: 048
  4. ACUITEL 20 MG, COMPRIME ENROBE [Suspect]
     Active Substance: QUINAPRIL HYDROCHLORIDE
     Indication: HYPERTENSION
     Dosage: 1 DOSAGE FORMS DAILY;
     Route: 048
     Dates: end: 20120627
  5. NAFTIDROFURYL [Concomitant]
     Active Substance: NAFRONYL
     Indication: THROMBOANGIITIS OBLITERANS
     Dosage: 400 MILLIGRAM DAILY;
     Route: 048
     Dates: end: 20120703
  6. ZYLORIC 100 MG, COMPRIME [Concomitant]
     Indication: HYPERURICAEMIA
     Dosage: 1 DOSAGE FORMS DAILY;
     Route: 048
     Dates: end: 20120627
  7. EUPRESSYL 60 MG, GELULE [Concomitant]
     Active Substance: URAPIDIL
     Indication: HYPERTENSION
     Dosage: 2 DOSAGE FORMS DAILY;
     Route: 048
     Dates: end: 20120627

REACTIONS (1)
  - Renal failure [Recovering/Resolving]

NARRATIVE: CASE EVENT DATE: 20120626
